FAERS Safety Report 15749782 (Version 2)
Quarter: 2018Q4

REPORT INFORMATION
  Report Type: Spontaneous
  Country: FR (occurrence: FR)
  Receive Date: 20181221
  Receipt Date: 20181221
  Transmission Date: 20190205
  Serious: Yes (Other)
  Sender: FDA-Public Use
  Company Number: PHHY2018FR188929

PATIENT
  Age: 33 Year
  Sex: Male

DRUGS (4)
  1. CICLOSPORIN [Suspect]
     Active Substance: CYCLOSPORINE
     Indication: IMMUNOSUPPRESSANT DRUG THERAPY
  2. CICLOSPORIN [Suspect]
     Active Substance: CYCLOSPORINE
     Indication: RENAL TRANSPLANT
     Dosage: UNK
     Route: 065
  3. MYCOPHENOLATE MOFETIL. [Suspect]
     Active Substance: MYCOPHENOLATE MOFETIL
     Indication: RENAL TRANSPLANT
     Dosage: UNK
     Route: 065
  4. MYCOPHENOLATE MOFETIL. [Suspect]
     Active Substance: MYCOPHENOLATE MOFETIL
     Indication: IMMUNOSUPPRESSANT DRUG THERAPY

REACTIONS (10)
  - Body tinea [Recovered/Resolved]
  - Papule [Recovered/Resolved]
  - Onychomycosis [Unknown]
  - Dermatophytosis [Recovered/Resolved]
  - Skin exfoliation [Recovered/Resolved]
  - Disease recurrence [Unknown]
  - Trichophytosis [Recovered/Resolved]
  - Nephropathy [Unknown]
  - Erythema [Recovered/Resolved]
  - Hepatitis E [Unknown]
